FAERS Safety Report 4335745-5 (Version None)
Quarter: 2004Q2

REPORT INFORMATION
  Report Type: 
  Country: None (occurrence: None)
  Receive Date: 20040406
  Receipt Date: 20040329
  Transmission Date: 20050107
  Serious: Yes (Other)
  Sender: FDA-Public Use
  Company Number: 200411008GDS

PATIENT
  Age: 63 Year
  Sex: Male

DRUGS (1)
  1. LEVITRA [Suspect]
     Indication: ERECTILE DYSFUNCTION
     Dosage: 20 MG, TIW, ORAL
     Route: 048
     Dates: start: 20030401, end: 20040301

REACTIONS (3)
  - DRUG INEFFECTIVE [None]
  - HAEMATURIA [None]
  - URETHRAL PAPILLOMA [None]
